FAERS Safety Report 21490428 (Version 1)
Quarter: 2022Q4

REPORT INFORMATION
  Report Type: Spontaneous
  Country: US (occurrence: None)
  Receive Date: 20221021
  Receipt Date: 20221021
  Transmission Date: 20230112
  Serious: No
  Sender: FDA-Public Use
  Company Number: US-SUPERNUS Pharmaceuticals, Inc.-SUP202208-002326

PATIENT
  Sex: Male

DRUGS (4)
  1. QELBREE [Suspect]
     Active Substance: VILOXAZINE HYDROCHLORIDE
     Indication: Product used for unknown indication
     Dates: start: 20220728
  2. VYVANSE [Concomitant]
     Active Substance: LISDEXAMFETAMINE DIMESYLATE
  3. MELATONIN [Concomitant]
     Active Substance: MELATONIN
  4. GUAIFENESIN [Concomitant]
     Active Substance: GUAIFENESIN

REACTIONS (3)
  - Irritability [Unknown]
  - Mood swings [Unknown]
  - Somnolence [Unknown]
